FAERS Safety Report 21263239 (Version 1)
Quarter: 2022Q3

REPORT INFORMATION
  Report Type: Report from Study
  Country: HN (occurrence: HN)
  Receive Date: 20220829
  Receipt Date: 20220829
  Transmission Date: 20221027
  Serious: Yes (Other)
  Sender: FDA-Public Use
  Company Number: HN-NOVARTISPH-NVSC2021HN296529

PATIENT
  Age: 66 Year
  Sex: Male

DRUGS (3)
  1. HYDROCHLOROTHIAZIDE\VALSARTAN [Suspect]
     Active Substance: HYDROCHLOROTHIAZIDE\VALSARTAN
     Indication: Product used for unknown indication
     Dosage: UNK(160/12.5 MG) (15 YEARS AGO)
     Route: 065
  2. HYDROCHLOROTHIAZIDE\VALSARTAN [Suspect]
     Active Substance: HYDROCHLOROTHIAZIDE\VALSARTAN
     Dosage: UNK (320/12.5 MG) (STARTED 15 YEARS AGO APPROXIMATELY AND STOPPED 4 MONTHS AGO APPROXIMATELY)
     Route: 065
  3. EXFORGE HCT [Suspect]
     Active Substance: AMLODIPINE BESYLATE\HYDROCHLOROTHIAZIDE\VALSARTAN
     Indication: Product used for unknown indication
     Dosage: UNK, STARTED 4 MONTHS AGO APPROXIMATELY
     Route: 065

REACTIONS (5)
  - Neuropathy peripheral [Unknown]
  - Road traffic accident [Unknown]
  - Pain in extremity [Unknown]
  - Prescription drug used without a prescription [Unknown]
  - Therapeutic product effect incomplete [Unknown]
